FAERS Safety Report 10393714 (Version 1)
Quarter: 2014Q3

REPORT INFORMATION
  Report Type: Spontaneous
  Country: BR (occurrence: BR)
  Receive Date: 20140819
  Receipt Date: 20140819
  Transmission Date: 20150326
  Serious: Yes (Hospitalization, Other)
  Sender: FDA-Public Use
  Company Number: BR-PFIZER INC-2014226854

PATIENT
  Age: 65 Year
  Sex: Female
  Weight: 70 kg

DRUGS (2)
  1. EZETROL [Concomitant]
     Active Substance: EZETIMIBE
     Dosage: UNK
  2. LIPITOR [Suspect]
     Active Substance: ATORVASTATIN CALCIUM
     Indication: BLOOD CHOLESTEROL INCREASED
     Dosage: 40 MG, DAILY
     Route: 048
     Dates: start: 2010, end: 2012

REACTIONS (7)
  - Pain [Not Recovered/Not Resolved]
  - Drug ineffective [Unknown]
  - Incision site infection [Unknown]
  - Diabetes mellitus [Unknown]
  - Pain in extremity [Not Recovered/Not Resolved]
  - Coronary artery disease [Unknown]
  - Vascular occlusion [Unknown]

NARRATIVE: CASE EVENT DATE: 2012
